FAERS Safety Report 9757519 (Version 1)
Quarter: 2013Q4

REPORT INFORMATION
  Report Type: Report from Study
  Country: IT (occurrence: IT)
  Receive Date: 20131216
  Receipt Date: 20131216
  Transmission Date: 20140711
  Serious: Yes (Hospitalization)
  Sender: FDA-Public Use
  Company Number: IT-ROCHE-1318327

PATIENT
  Age: 83 Year
  Sex: Female

DRUGS (2)
  1. RANIBIZUMAB [Suspect]
     Indication: MACULAR DEGENERATION
     Dosage: EVERY 40 DAYS FROM OTHER EYE INJECTION.
     Route: 050
     Dates: start: 201301
  2. RANIBIZUMAB [Suspect]
     Route: 065
     Dates: start: 201303

REACTIONS (5)
  - Syncope [Recovered/Resolved]
  - Injury [Recovered/Resolved]
  - Fall [Recovered/Resolved]
  - Loss of consciousness [Recovered/Resolved]
  - Contusion [Recovered/Resolved]
